FAERS Safety Report 10676281 (Version 1)
Quarter: 2014Q4

REPORT INFORMATION
  Report Type: Spontaneous
  Country: CA (occurrence: CA)
  Receive Date: 20141226
  Receipt Date: 20141226
  Transmission Date: 20150529
  Serious: Yes (Other)
  Sender: FDA-Public Use
  Company Number: CA-ROCHE-1513405

PATIENT
  Age: 40 Year
  Sex: Female

DRUGS (4)
  1. CODEINE [Suspect]
     Active Substance: CODEINE
     Indication: INFLUENZA
     Dosage: 10-25 ML, CONTAINS 10MG/5ML
     Route: 048
     Dates: start: 201412, end: 20141221
  2. PSEUDOEPHEDRINE [Suspect]
     Active Substance: PSEUDOEPHEDRINE
     Indication: INFLUENZA
     Dosage: 10-25 ML, CONTAINS 30MG/5ML
     Route: 048
     Dates: start: 201412, end: 20141221
  3. TAMIFLU [Suspect]
     Active Substance: OSELTAMIVIR PHOSPHATE
     Indication: INFLUENZA
     Route: 048
     Dates: start: 20141220, end: 20141221
  4. TRIPROLIDINE [Suspect]
     Active Substance: TRIPROLIDINE
     Indication: INFLUENZA
     Dosage: 10-25 ML, CONTAINS 5MG/ML
     Route: 048
     Dates: start: 201412, end: 20141221

REACTIONS (6)
  - Dyspnoea [Not Recovered/Not Resolved]
  - Vomiting [Not Recovered/Not Resolved]
  - Chest discomfort [Not Recovered/Not Resolved]
  - Medication error [Unknown]
  - Feeling abnormal [Not Recovered/Not Resolved]
  - Nausea [Not Recovered/Not Resolved]

NARRATIVE: CASE EVENT DATE: 20141220
